FAERS Safety Report 4610318-5 (Version None)
Quarter: 2005Q1

REPORT INFORMATION
  Report Type: 
  Country: None (occurrence: None)
  Receive Date: 20050314
  Receipt Date: 20050228
  Transmission Date: 20050727
  Serious: Yes (Other)
  Sender: FDA-Public Use
  Company Number: DSA_81217_2005

PATIENT
  Age: 38 Year
  Sex: Female
  Weight: 59.8748 kg

DRUGS (7)
  1. XYREM [Suspect]
     Indication: FATIGUE
     Dosage: 2.25 G TWICE NIGHTLY PO
     Route: 048
     Dates: start: 20050224, end: 20050224
  2. XYREM [Suspect]
     Indication: FIBROMYALGIA
     Dosage: 2.25 G TWICE NIGHTLY PO
     Route: 048
     Dates: start: 20050224, end: 20050224
  3. XYREM [Suspect]
     Indication: INSOMNIA
     Dosage: 2.25 G TWICE NIGHTLY PO
     Route: 048
     Dates: start: 20050224, end: 20050224
  4. ELAVIL [Concomitant]
  5. TOPAMAX [Concomitant]
  6. KEPPRA [Concomitant]
  7. TOPAMAX [Concomitant]

REACTIONS (7)
  - APHASIA [None]
  - HYPOAESTHESIA [None]
  - HYPOTONIA [None]
  - MOVEMENT DISORDER [None]
  - MUSCLE SPASTICITY [None]
  - PAIN IN JAW [None]
  - UNEVALUABLE EVENT [None]
